FAERS Safety Report 13096919 (Version 3)
Quarter: 2017Q2

REPORT INFORMATION
  Report Type: Spontaneous
  Country: US (occurrence: US)
  Receive Date: 20170109
  Receipt Date: 20170418
  Transmission Date: 20170830
  Serious: No
  Sender: FDA-Public Use
  Company Number: US-PFIZER INC-2017005420

PATIENT
  Age: 69 Year
  Sex: Female
  Weight: 95 kg

DRUGS (22)
  1. CELEBREX [Concomitant]
     Active Substance: CELECOXIB
     Dosage: 200 MG, DAILY
     Route: 048
     Dates: start: 20130517
  2. LYRICA [Suspect]
     Active Substance: PREGABALIN
     Dosage: 300 MG, 2X/DAY
     Route: 048
     Dates: start: 20150211
  3. STIOLTO RESPIMAT [Concomitant]
     Active Substance: OLODATEROL HYDROCHLORIDE\TIOTROPIUM BROMIDE MONOHYDRATE
     Dosage: UNK UNK, 2 PUFFS 1X/DAY  [2.5 UG OLODATEROL HYDROCHLORIDE]/[2.5 UG TIOTROPIUM BROMIDE]
     Route: 055
     Dates: start: 20160302
  4. NITROFURANTOIN. [Concomitant]
     Active Substance: NITROFURANTOIN
     Dosage: 200 MG, 1X/DAY
  5. VITAMIN D3 [Concomitant]
     Active Substance: CHOLECALCIFEROL
     Dosage: UNK UNK, 2000 1X/DAY
  6. CELECOXIB. [Concomitant]
     Active Substance: CELECOXIB
     Indication: HEADACHE
  7. PRILOSEC [Concomitant]
     Active Substance: OMEPRAZOLE MAGNESIUM
     Dosage: 20.6 MG, 1X/DAY
  8. VIBERZI [Concomitant]
     Active Substance: ELUXADOLINE
     Dosage: 100 MG, 2X/DAY
     Route: 048
     Dates: start: 20160505
  9. PRIMIDONE. [Concomitant]
     Active Substance: PRIMIDONE
     Dosage: 50 MG, 3X/DAY
     Route: 048
     Dates: start: 20150914
  10. COUMADIN [Concomitant]
     Active Substance: WARFARIN SODIUM
     Dosage: 2.5 MG TABS 1.5 PO SUNDAY, WED THEN 1 PO OTHER 5 DAYS
     Route: 048
     Dates: start: 20131001
  11. WARFARIN [Concomitant]
     Active Substance: WARFARIN
     Indication: COAGULOPATHY
     Dosage: 2.5 MG, DAILY, WEDNESDAY AND SUNDAY (^TAKES A PILL AND A HALF^)
     Dates: start: 2011
  12. PRIMIDONE. [Concomitant]
     Active Substance: PRIMIDONE
     Indication: TREMOR
     Dosage: 25 MG, 1X/DAY
  13. METROGEL [Concomitant]
     Active Substance: METRONIDAZOLE
     Dosage: 1 %, UNK
     Dates: start: 20080627
  14. CELEBREX [Concomitant]
     Active Substance: CELECOXIB
     Dosage: 200 MG, 1X/DAY
  15. CELECOXIB. [Concomitant]
     Active Substance: CELECOXIB
     Indication: TEMPOROMANDIBULAR JOINT SYNDROME
     Dosage: UNK
     Dates: start: 201608, end: 201608
  16. MACRODANTIN [Concomitant]
     Active Substance: NITROFURANTOIN
     Indication: CYSTITIS
     Dosage: 100 MG, DAILY
     Route: 048
     Dates: start: 20160602
  17. LYRICA [Suspect]
     Active Substance: PREGABALIN
     Indication: NEUROPATHY PERIPHERAL
     Dosage: 300 MG, ONCE OR TWICE PER DAY
     Dates: start: 201402
  18. METRONIDAZOLE. [Concomitant]
     Active Substance: METRONIDAZOLE
     Dosage: 0.75 %, 2X/DAY
  19. PRILOSEC [Concomitant]
     Active Substance: OMEPRAZOLE MAGNESIUM
     Dosage: 20 MG, UNK
     Dates: start: 20140318
  20. STIOLTO RESPIMAT [Concomitant]
     Active Substance: OLODATEROL HYDROCHLORIDE\TIOTROPIUM BROMIDE MONOHYDRATE
     Indication: CHRONIC OBSTRUCTIVE PULMONARY DISEASE
     Dosage: TWO PUFFS ONCE A DAY, 2.5M AERBOEH INHALER
     Route: 055
     Dates: start: 2015
  21. CARTIA XT [Concomitant]
     Active Substance: DILTIAZEM HYDROCHLORIDE
     Indication: CARDIAC DISORDER
     Dosage: 240 MG, 1X/DAY
     Dates: start: 2014
  22. CARDIZEM CD [Concomitant]
     Active Substance: DILTIAZEM HYDROCHLORIDE
     Dosage: 240 MG, 1X/DAY
     Route: 048
     Dates: start: 20140425

REACTIONS (3)
  - Increased appetite [Unknown]
  - Intentional product misuse [Unknown]
  - Weight increased [Unknown]

NARRATIVE: CASE EVENT DATE: 201402
